FAERS Safety Report 8460175 (Version 4)
Quarter: 2012Q4

REPORT INFORMATION
  Report Type: 
  Country: US (occurrence: US)
  Receive Date: 20120315
  Receipt Date: 20120912
  Transmission Date: 20130627
  Serious: Yes (Hospitalization)
  Sender: FDA-Public Use
  Company Number: US-BAYER-2012-023820

PATIENT
  Age: 28 Year
  Sex: Female
  Weight: 58.96 kg

DRUGS (11)
  1. YAZ [Suspect]
     Indication: ACNE
     Dosage: UNK
     Dates: start: 200802, end: 200809
  2. YASMIN [Suspect]
     Indication: ACNE
     Dosage: UNK
     Dates: start: 20080201, end: 200809
  3. YASMIN [Suspect]
     Indication: ACNE
  4. OCELLA [Suspect]
     Indication: ACNE
     Dosage: UNK
     Dates: start: 20080201, end: 200809
  5. LORAZEPAM [Concomitant]
     Dosage: 1 mg, UNK
     Dates: start: 20080808
  6. LIDODERM [Concomitant]
     Dosage: UNK
     Dates: start: 20080807
  7. ALBUTEROL SULFATE [Concomitant]
     Dosage: 90mcg inhaler four times daily
     Route: 045
     Dates: start: 20080902
  8. TRETINOIN [Concomitant]
     Dosage: UNK
     Dates: start: 20080902
  9. DICLOFENAC [Concomitant]
     Dosage: 50 mg, BID
     Dates: start: 20080902
  10. OXYCODONE/APAP [Concomitant]
     Dosage: One tab every 8 hours
     Dates: start: 20080902
  11. WELLBUTRIN [Concomitant]
     Indication: EX-TOBACCO USER
     Dosage: UNK
     Dates: start: 2007, end: 2008

REACTIONS (8)
  - Deep vein thrombosis [None]
  - Pain in extremity [None]
  - Asthenia [None]
  - Gait disturbance [None]
  - Fear of pregnancy [None]
  - Stress [None]
  - Panic attack [None]
  - Anxiety [None]
